FAERS Safety Report 4778770-2 (Version None)
Quarter: 2005Q3

REPORT INFORMATION
  Report Type: 
  Country: None (occurrence: None)
  Receive Date: 20050922
  Receipt Date: 20050920
  Transmission Date: 20060218
  Serious: No
  Sender: FDA-Public Use
  Company Number: MK200509-0092-2

PATIENT
  Age: 42 Year
  Sex: Female

DRUGS (1)
  1. OPTIRAY 240 [Suspect]
     Indication: SCAN BRAIN
     Dosage: 40 ML, ONE TIME, IV
     Route: 042

REACTIONS (1)
  - ANAPHYLACTIC REACTION [None]
